FAERS Safety Report 5820872-3 (Version None)
Quarter: 2008Q3

REPORT INFORMATION
  Report Type: 
  Country: None (occurrence: None)
  Receive Date: 20080718
  Receipt Date: 20080718
  Transmission Date: 20090109
  Serious: No
  Sender: FDA-Public Use
  Company Number: None

PATIENT
  Age: 38 Year
  Sex: Female

DRUGS (1)
  1. GADOBENATE DIMEGLUMINE  BRACCO DIAGNOSTICS INC [Suspect]
     Dosage: IV
     Route: 042
     Dates: start: 20080716, end: 20080716

REACTIONS (1)
  - URTICARIA [None]
